FAERS Safety Report 9427143 (Version 1)
Quarter: 2013Q3

REPORT INFORMATION
  Report Type: Report from Study
  Country: US (occurrence: US)
  Receive Date: 20130730
  Receipt Date: 20130730
  Transmission Date: 20140515
  Serious: No
  Sender: FDA-Public Use
  Company Number: US-ABBOTT-12P-163-0965878-00

PATIENT
  Sex: Male
  Weight: 149.82 kg

DRUGS (4)
  1. NIASPAN (COATED) 500MG [Suspect]
     Indication: BLOOD CHOLESTEROL ABNORMAL
     Dosage: 500MG IN A.M AND 1000 MG AT BEDTIME
  2. NIASPAN (COATED) 500MG [Suspect]
     Indication: LIPIDS ABNORMAL
  3. ASA [Concomitant]
     Indication: PRODUCT USED FOR UNKNOWN INDICATION
  4. MULTIPLE OTHER MEDICATIONS [Concomitant]
     Indication: PRODUCT USED FOR UNKNOWN INDICATION

REACTIONS (1)
  - Flushing [Not Recovered/Not Resolved]
